FAERS Safety Report 10337347 (Version 1)
Quarter: 2014Q3

REPORT INFORMATION
  Report Type: Spontaneous
  Country: MX (occurrence: MX)
  Receive Date: 20140723
  Receipt Date: 20140723
  Transmission Date: 20150326
  Serious: Yes (Hospitalization)
  Sender: FDA-Public Use
  Company Number: MX-ROCHE-1436887

PATIENT
  Age: 50 Year
  Sex: Female

DRUGS (4)
  1. KADCYLA [Suspect]
     Active Substance: ADO-TRASTUZUMAB EMTANSINE
     Indication: BREAST CANCER
     Dosage: 6 CYCLES OF TREATMENT
     Route: 042
     Dates: start: 201403, end: 201406
  2. RANISEN [Concomitant]
     Indication: PREMEDICATION
     Route: 042
     Dates: start: 201403, end: 201406
  3. VIRLIX [Concomitant]
     Active Substance: CETIRIZINE HYDROCHLORIDE
     Indication: PREMEDICATION
     Route: 042
     Dates: start: 201403, end: 201406
  4. DEXAMETHASONE. [Concomitant]
     Active Substance: DEXAMETHASONE
     Indication: PREMEDICATION
     Route: 042
     Dates: start: 201403, end: 201406

REACTIONS (3)
  - Hypertensive crisis [Unknown]
  - Cerebrovascular accident [Unknown]
  - Disease progression [Unknown]

NARRATIVE: CASE EVENT DATE: 201403
